FAERS Safety Report 7956295-0 (Version None)
Quarter: 2011Q4

REPORT INFORMATION
  Report Type: 
  Country: None (occurrence: None)
  Receive Date: 20111125
  Receipt Date: 20111110
  Transmission Date: 20120403
  Serious: Yes (Other)
  Sender: FDA-Public Use
  Company Number: 2011030307

PATIENT
  Sex: Female

DRUGS (4)
  1. HIZENTRA [Suspect]
     Indication: PRIMARY IMMUNODEFICIENCY SYNDROME
     Dosage: (28 G 1X/WEEK, 140 ML USING FREEDOM PUMP IN 3 SITES SUBCUTANEOUS), (SUBCUTANEOUS), (28 G1X/WEEK, 140
     Route: 058
     Dates: start: 20111101, end: 20111101
  2. HIZENTRA [Suspect]
     Indication: PRIMARY IMMUNODEFICIENCY SYNDROME
     Dosage: (28 G 1X/WEEK, 140 ML USING FREEDOM PUMP IN 3 SITES SUBCUTANEOUS), (SUBCUTANEOUS), (28 G1X/WEEK, 140
     Route: 058
     Dates: start: 20100901
  3. HIZENTRA [Suspect]
     Indication: PRIMARY IMMUNODEFICIENCY SYNDROME
     Dosage: (28 G 1X/WEEK, 140 ML USING FREEDOM PUMP IN 3 SITES SUBCUTANEOUS), (SUBCUTANEOUS), (28 G1X/WEEK, 140
     Route: 058
     Dates: start: 20111108, end: 20111108
  4. HIZENTRA [Suspect]

REACTIONS (6)
  - DIARRHOEA [None]
  - BONE PAIN [None]
  - URTICARIA [None]
  - MENINGITIS ASEPTIC [None]
  - ARTHRALGIA [None]
  - ABDOMINAL PAIN [None]
